FAERS Safety Report 7600940-6 (Version None)
Quarter: 2011Q3

REPORT INFORMATION
  Report Type: 
  Country: None (occurrence: None)
  Receive Date: 20110711
  Receipt Date: 20110701
  Transmission Date: 20111222
  Serious: Yes (Other)
  Sender: FDA-Public Use
  Company Number: US-ASTRAZENECA-2011SE39721

PATIENT
  Age: 48 Year
  Sex: Female
  Weight: 54 kg

DRUGS (19)
  1. SEROQUEL [Suspect]
     Route: 048
     Dates: start: 20110201
  2. ZOLOFT [Concomitant]
  3. SEROQUEL [Suspect]
     Indication: SCHIZOPHRENIA
     Route: 048
     Dates: start: 20030101
  4. CELEXA [Suspect]
  5. TEMAZEPAM [Concomitant]
  6. AMITRIPTYLINE HCL [Concomitant]
  7. KLONOPIN [Concomitant]
  8. TEMAZEPAM [Concomitant]
  9. SEROQUEL [Suspect]
     Route: 048
  10. SEROQUEL [Suspect]
     Route: 048
  11. SEROQUEL [Suspect]
     Route: 048
     Dates: start: 20110201
  12. SEROQUEL [Suspect]
     Indication: SLEEP DISORDER
     Route: 048
     Dates: start: 20030101
  13. SEROQUEL [Suspect]
     Route: 048
  14. SEROQUEL [Suspect]
     Route: 048
  15. KLONOPIN [Concomitant]
     Indication: PANIC ATTACK
  16. SEROQUEL [Suspect]
     Indication: BIPOLAR DISORDER
     Route: 048
     Dates: start: 20030101
  17. SEROQUEL [Suspect]
     Route: 048
  18. SEROQUEL [Suspect]
     Route: 048
  19. SEROQUEL [Suspect]
     Route: 048
     Dates: start: 20110201

REACTIONS (17)
  - MIGRAINE WITH AURA [None]
  - ROAD TRAFFIC ACCIDENT [None]
  - SOMNOLENCE [None]
  - INCORRECT DOSE ADMINISTERED [None]
  - DIABETES MELLITUS [None]
  - TOOTHACHE [None]
  - POST-TRAUMATIC NECK SYNDROME [None]
  - INCREASED TENDENCY TO BRUISE [None]
  - VISUAL IMPAIRMENT [None]
  - VISION BLURRED [None]
  - AMNESIA [None]
  - ARTHROPOD BITE [None]
  - OVARIAN CYST [None]
  - IMPAIRED DRIVING ABILITY [None]
  - LOSS OF CONSCIOUSNESS [None]
  - MOBILITY DECREASED [None]
  - CONSTIPATION [None]
